FAERS Safety Report 9098211 (Version 3)
Quarter: 2013Q1

REPORT INFORMATION
  Report Type: Spontaneous
  Country: US (occurrence: US)
  Receive Date: 20130213
  Receipt Date: 20130307
  Transmission Date: 20140127
  Serious: Yes (Hospitalization)
  Sender: FDA-Public Use
  Company Number: US-GILEAD-2013-0069593

PATIENT
  Sex: Female

DRUGS (3)
  1. LETAIRIS [Suspect]
     Indication: PULMONARY HYPERTENSION
     Dosage: 5 MG, QD
     Dates: start: 20101109
  2. LETAIRIS [Suspect]
     Indication: GAUCHER^S DISEASE
  3. REMODULIN [Concomitant]

REACTIONS (1)
  - Device related infection [Recovered/Resolved]
